FAERS Safety Report 5406336-X (Version None)
Quarter: 2007Q3

REPORT INFORMATION
  Report Type: 
  Country: None (occurrence: None)
  Receive Date: 20070806
  Receipt Date: 20070803
  Transmission Date: 20080115
  Serious: Yes (Other)
  Sender: FDA-Public Use
  Company Number: US-SANOFI-SYNTHELABO-A03200704902

PATIENT
  Sex: Female

DRUGS (8)
  1. HIGH CHOLESTEROL MEDICATION [Concomitant]
     Dosage: UNK
     Route: 065
  2. ASPIRIN [Concomitant]
     Dosage: UNK
     Route: 065
  3. NORVASC [Concomitant]
     Dosage: UNK
     Route: 065
  4. PLAVIX [Suspect]
     Indication: CEREBROVASCULAR ACCIDENT
     Route: 048
     Dates: start: 20060901
  5. OXYGEN [Concomitant]
     Dosage: UNK
     Route: 055
  6. DITROPAN [Concomitant]
     Dosage: UNK
     Route: 048
  7. NEXIUM [Concomitant]
     Dosage: UNK
     Route: 048
  8. LOPRESSOR [Concomitant]
     Dosage: UNK
     Route: 048

REACTIONS (3)
  - BASAL CELL CARCINOMA [None]
  - DYSPNOEA [None]
  - INCREASED TENDENCY TO BRUISE [None]
